FAERS Safety Report 13172399 (Version 4)
Quarter: 2018Q4

REPORT INFORMATION
  Report Type: Report from Study
  Country: JP (occurrence: JP)
  Receive Date: 20170201
  Receipt Date: 20181022
  Transmission Date: 20190204
  Serious: Yes (Hospitalization, Other)
  Sender: FDA-Public Use
  Company Number: JP-ASTELLAS-2016JP016671

PATIENT
  Age: 33 Year
  Sex: Female
  Weight: 51 kg

DRUGS (31)
  1. TACROLIMUS. [Suspect]
     Active Substance: TACROLIMUS
     Route: 048
     Dates: start: 20091218, end: 20100114
  2. PREDONINE [Suspect]
     Active Substance: PREDNISOLONE
     Route: 048
     Dates: start: 20090430, end: 20090527
  3. TACROLIMUS. [Suspect]
     Active Substance: TACROLIMUS
     Dosage: 3 MG, ONCE DAILY, AFTER BREAKFAST
     Route: 048
     Dates: start: 20110325
  4. GASTER [Suspect]
     Active Substance: FAMOTIDINE
     Indication: PROPHYLAXIS
     Route: 048
     Dates: end: 20130108
  5. MICARDIS [Suspect]
     Active Substance: TELMISARTAN
     Route: 048
     Dates: start: 20160328
  6. PREDONINE [Suspect]
     Active Substance: PREDNISOLONE
     Dosage: 17.5MG-15MG, EVERY OTHER DAY
     Route: 048
     Dates: start: 20090528, end: 20090624
  7. PREDONINE [Suspect]
     Active Substance: PREDNISOLONE
     Route: 048
     Dates: start: 20091120, end: 20101216
  8. PREDONINE [Suspect]
     Active Substance: PREDNISOLONE
     Dosage: 20MG-17.5MG, EVERY OTHER DAY
     Route: 048
     Dates: start: 20110422, end: 20110519
  9. PREDONINE [Suspect]
     Active Substance: PREDNISOLONE
     Route: 048
     Dates: start: 20110520, end: 20110616
  10. MICARDIS [Suspect]
     Active Substance: TELMISARTAN
     Indication: LUPUS NEPHRITIS
     Route: 048
     Dates: start: 20140716, end: 20141104
  11. PREDONINE [Suspect]
     Active Substance: PREDNISOLONE
     Route: 048
     Dates: start: 20110617, end: 20110714
  12. PREDONINE [Suspect]
     Active Substance: PREDNISOLONE
     Route: 048
     Dates: start: 20120209
  13. PREDONINE [Suspect]
     Active Substance: PREDNISOLONE
     Route: 048
     Dates: start: 20110910, end: 20120209
  14. GASTER [Suspect]
     Active Substance: FAMOTIDINE
     Route: 048
     Dates: start: 20130731, end: 201509
  15. MICARDIS [Suspect]
     Active Substance: TELMISARTAN
     Dosage: 40 MG, ONCE DAILY, AFTER BREAKFAST
     Route: 065
     Dates: start: 20141105
  16. PREDONINE [Suspect]
     Active Substance: PREDNISOLONE
     Indication: LUPUS NEPHRITIS
     Route: 048
     Dates: end: 20090202
  17. PREDONINE [Suspect]
     Active Substance: PREDNISOLONE
     Route: 048
     Dates: start: 20090625, end: 20090722
  18. PREDONINE [Suspect]
     Active Substance: PREDNISOLONE
     Dosage: 15MG-12.5MG, EVERY OTHER DAY
     Route: 048
     Dates: start: 20090723, end: 20090826
  19. PREDONINE [Suspect]
     Active Substance: PREDNISOLONE
     Route: 048
     Dates: start: 20101217, end: 20110421
  20. GENTACIN [Suspect]
     Active Substance: GENTAMICIN SULFATE
     Indication: PRODUCT USED FOR UNKNOWN INDICATION
     Dosage: UNK UNK, TWICE DAILY
     Route: 061
  21. PREDONINE [Suspect]
     Active Substance: PREDNISOLONE
     Dosage: 12.5MG-10MG, EVERY OTHER DAY
     Route: 048
     Dates: start: 20091023, end: 20091119
  22. PREDONINE [Suspect]
     Active Substance: PREDNISOLONE
     Dosage: 15MG-12.5MG, EVERY OTHER DAY
     Route: 048
     Dates: start: 20110715, end: 20110909
  23. PERSANTINE [Suspect]
     Active Substance: DIPYRIDAMOLE
     Indication: PROPHYLAXIS
     Route: 048
     Dates: end: 20121219
  24. PERSANTINE [Suspect]
     Active Substance: DIPYRIDAMOLE
     Indication: LUPUS NEPHRITIS
     Dosage: 150 MG, ONCE DAILY, AFTER BREAKFAST
     Route: 048
  25. PL [Suspect]
     Active Substance: ACETAMINOPHEN\CAFFEINE\PROMETHAZINE\SALICYLAMIDE
     Indication: PRODUCT USED FOR UNKNOWN INDICATION
     Dosage: 1 G, THRICE DAILY, AFTER EACH MEAL
     Route: 065
  26. MICARDIS [Suspect]
     Active Substance: TELMISARTAN
     Route: 048
     Dates: end: 20150709
  27. MICARDIS [Suspect]
     Active Substance: TELMISARTAN
     Dosage: UNK UNK, UNKNOWN FREQ.
     Route: 048
  28. PREDONINE [Suspect]
     Active Substance: PREDNISOLONE
     Dosage: 17.5MG-20MG, EVERY OTHER DAY
     Route: 048
     Dates: start: 20090202, end: 20090429
  29. PREDONINE [Suspect]
     Active Substance: PREDNISOLONE
     Route: 048
     Dates: start: 20090827, end: 20091022
  30. TACROLIMUS. [Suspect]
     Active Substance: TACROLIMUS
     Indication: LUPUS NEPHRITIS
     Route: 048
     Dates: start: 20081031, end: 20091217
  31. TACROLIMUS. [Suspect]
     Active Substance: TACROLIMUS
     Route: 048
     Dates: start: 20100115, end: 20110324

REACTIONS (4)
  - Premature delivery [Unknown]
  - Gestational hypertension [Recovering/Resolving]
  - Gestational hypertension [Not Recovered/Not Resolved]
  - Maternal exposure during pregnancy [Unknown]

NARRATIVE: CASE EVENT DATE: 20150909
